FAERS Safety Report 8974169 (Version 1)
Quarter: 2012Q4

REPORT INFORMATION
  Report Type: Spontaneous
  Country: IL (occurrence: None)
  Receive Date: 20121211
  Receipt Date: 20121211
  Transmission Date: 20130627
  Serious: Yes (Hospitalization)
  Sender: FDA-Public Use
  Company Number: 2012AT000755

PATIENT
  Age: 80 Year
  Sex: Male

DRUGS (1)
  1. ISOSORBIDE DINITRATE [Suspect]
     Indication: DRUG USE FOR UNKNOWN INDICATION
     Dates: start: 20120909, end: 20120909

REACTIONS (2)
  - Syncope [None]
  - Asthenia [None]
